FAERS Safety Report 4581372-4 (Version None)
Quarter: 2005Q1

REPORT INFORMATION
  Report Type: 
  Country: None (occurrence: None)
  Receive Date: 20050214
  Receipt Date: 20041007
  Transmission Date: 20050727
  Serious: No
  Sender: FDA-Public Use
  Company Number: US-GLAXOSMITHKLINE-A0529002A

PATIENT
  Sex: Female

DRUGS (5)
  1. LAMICTAL [Suspect]
     Indication: ILL-DEFINED DISORDER
     Dosage: 50MG TWICE PER DAY
     Route: 048
     Dates: start: 20040701, end: 20041006
  2. PAXIL [Suspect]
     Indication: ILL-DEFINED DISORDER
     Route: 048
  3. REMERON [Concomitant]
  4. AZT [Concomitant]
  5. ZIAGEN [Concomitant]

REACTIONS (2)
  - PRURITUS [None]
  - RASH GENERALISED [None]
